FAERS Safety Report 7010842-4 (Version None)
Quarter: 2010Q3

REPORT INFORMATION
  Report Type: 
  Country: None (occurrence: None)
  Receive Date: 20100923
  Receipt Date: 20100923
  Transmission Date: 20110219
  Serious: No
  Sender: FDA-Public Use
  Company Number: None

PATIENT
  Age: 77 Year
  Sex: Male

DRUGS (1)
  1. ANCEF [Suspect]
     Indication: POST PROCEDURAL COMPLICATION
     Dosage: 1 G ONCE IV PIGGYBACK
     Route: 042

REACTIONS (6)
  - CHILLS [None]
  - HAEMATOMA [None]
  - HYPOTENSION [None]
  - NAUSEA [None]
  - OXYGEN SATURATION DECREASED [None]
  - VOMITING [None]
